FAERS Safety Report 6440758-3 (Version None)
Quarter: 2009Q4

REPORT INFORMATION
  Report Type: 
  Country: None (occurrence: None)
  Receive Date: 20091116
  Receipt Date: 20090929
  Transmission Date: 20100525
  Serious: Yes (Other)
  Sender: FDA-Public Use
  Company Number: PK-RANBAXY-2008US-19507

PATIENT

DRUGS (4)
  1. MIDAZOLAM HCL [Suspect]
     Indication: PREMEDICATION
     Dosage: 7.5 MG, UNK
     Route: 065
  2. FENTANYL-100 [Suspect]
     Indication: ANAESTHESIA
     Dosage: 100 MICRO GRAM, UNK
     Route: 042
  3. PROPOFOL [Suspect]
     Indication: ANAESTHESIA
     Dosage: 100 MG, UNK
     Route: 042
  4. ATRACURIUM BESYLATE [Suspect]
     Indication: ANAESTHESIA
     Dosage: 30 MICRO GRAM, UNK
     Route: 042

REACTIONS (7)
  - ANAPHYLACTIC REACTION [None]
  - CYANOSIS [None]
  - HEART RATE INCREASED [None]
  - HYPOTENSION [None]
  - METABOLIC ACIDOSIS [None]
  - RESPIRATORY ACIDOSIS [None]
  - WHEEZING [None]
